FAERS Safety Report 21847639 (Version 1)
Quarter: 2023Q1

REPORT INFORMATION
  Report Type: Spontaneous
  Country: US (occurrence: None)
  Receive Date: 20230110
  Receipt Date: 20230110
  Transmission Date: 20230418
  Serious: No
  Sender: FDA-Public Use
  Company Number: None

PATIENT
  Age: 72 Year
  Sex: Male

DRUGS (1)
  1. EMPAGLIFLOZIN [Suspect]
     Active Substance: EMPAGLIFLOZIN
     Indication: Diabetes mellitus
     Dosage: FREQUENCY : DAILY;?
     Route: 048
     Dates: start: 20210507, end: 20210924

REACTIONS (8)
  - Asthenia [None]
  - Chills [None]
  - Dizziness [None]
  - Urinary incontinence [None]
  - Anal incontinence [None]
  - Sepsis [None]
  - Staphylococcal bacteraemia [None]
  - Urinary tract infection [None]

NARRATIVE: CASE EVENT DATE: 20210902
